FAERS Safety Report 17427375 (Version 1)
Quarter: 2020Q1

REPORT INFORMATION
  Report Type: Spontaneous
  Country: GR (occurrence: GR)
  Receive Date: 20200218
  Receipt Date: 20200218
  Transmission Date: 20200409
  Serious: Yes (Other)
  Sender: FDA-Public Use
  Company Number: GR-SA-2020SA028440

PATIENT
  Sex: Female
  Weight: 125 kg

DRUGS (1)
  1. LEVOCETIRIZINE [Suspect]
     Active Substance: LEVOCETIRIZINE
     Indication: PREMEDICATION
     Dosage: 5 MG, BID
     Route: 048
     Dates: start: 20200122, end: 20200123

REACTIONS (6)
  - Tachycardia [Recovered/Resolved]
  - Catatonia [Recovered/Resolved]
  - Chest pain [Recovered/Resolved]
  - Overdose [Unknown]
  - Dyspnoea [Recovered/Resolved]
  - Off label use [Unknown]

NARRATIVE: CASE EVENT DATE: 20200122
